FAERS Safety Report 10742245 (Version 1)
Quarter: 2015Q1

REPORT INFORMATION
  Report Type: Spontaneous
  Country: US (occurrence: None)
  Receive Date: 20150123
  Receipt Date: 20150123
  Transmission Date: 20150721
  Serious: Yes (Disabling)
  Sender: FDA-Public Use
  Company Number: None

PATIENT
  Age: 63 Year
  Sex: Female
  Weight: 36 kg

DRUGS (2)
  1. DIPHENHYDRAMINE [Suspect]
     Active Substance: DIPHENHYDRAMINE
     Indication: RHINORRHOEA
     Dosage: LIQUID TO BE TAKEN ORALLY; ADULT 2 TSP/CHILD 1 TSP
     Route: 048
     Dates: start: 20150118, end: 20150120
  2. DIPHENHYDRAMINE [Suspect]
     Active Substance: DIPHENHYDRAMINE
     Indication: NASOPHARYNGITIS
     Dosage: LIQUID TO BE TAKEN ORALLY; ADULT 2 TSP/CHILD 1 TSP
     Route: 048
     Dates: start: 20150118, end: 20150120

REACTIONS (8)
  - Abasia [None]
  - Impaired driving ability [None]
  - Arthralgia [None]
  - Swelling [None]
  - Movement disorder [None]
  - Joint swelling [None]
  - Peripheral swelling [None]
  - Pain [None]

NARRATIVE: CASE EVENT DATE: 20150118
